FAERS Safety Report 13544826 (Version 1)
Quarter: 2017Q2

REPORT INFORMATION
  Report Type: Spontaneous
  Country: GB (occurrence: GB)
  Receive Date: 20170515
  Receipt Date: 20170515
  Transmission Date: 20170830
  Serious: Yes (Other)
  Sender: FDA-Public Use
  Company Number: GB-GLAXOSMITHKLINE-GB2017069040

PATIENT
  Age: 57 Year
  Sex: Female
  Weight: 92.52 kg

DRUGS (2)
  1. FLUOXETINE HYDROCHLORIDE. [Concomitant]
     Active Substance: FLUOXETINE HYDROCHLORIDE
     Dosage: UNK
     Route: 065
  2. SALBUTAMOL SULPHATE [Suspect]
     Active Substance: ALBUTEROL SULFATE
     Indication: DYSPNOEA
     Dosage: 200 ?G, QID, 2 X 100 MICROGRAMS UP TO 4 TIMES A DAY.
     Route: 055
     Dates: start: 20170425, end: 20170428

REACTIONS (6)
  - Dyspnoea [Recovering/Resolving]
  - Cough [Recovering/Resolving]
  - Dry mouth [Recovered/Resolved]
  - Condition aggravated [Unknown]
  - Wheezing [Recovering/Resolving]
  - Headache [Recovered/Resolved]

NARRATIVE: CASE EVENT DATE: 20170425
